FAERS Safety Report 4297609-5 (Version None)
Quarter: 2004Q1

REPORT INFORMATION
  Report Type: 
  Country: None (occurrence: None)
  Receive Date: 20040126
  Receipt Date: 20031104
  Transmission Date: 20041129
  Serious: No
  Sender: FDA-Public Use
  Company Number: USA031151691

PATIENT
  Age: 88 Year
  Sex: Male

DRUGS (4)
  1. STRATTERA [Suspect]
     Indication: DEPRESSION
     Dosage: 40 MG/DAY
     Dates: start: 20031101
  2. NORVASC (AMLODIPINE BESILAE) [Concomitant]
  3. PROSCAR [Concomitant]
  4. FLOMAX [Concomitant]

REACTIONS (2)
  - ABDOMINAL DISCOMFORT [None]
  - NAUSEA [None]
